FAERS Safety Report 11008743 (Version 3)
Quarter: 2015Q2

REPORT INFORMATION
  Report Type: Report from Study
  Country: JP (occurrence: JP)
  Receive Date: 20150410
  Receipt Date: 20150622
  Transmission Date: 20150821
  Serious: Yes (Hospitalization, Other)
  Sender: FDA-Public Use
  Company Number: JP-JNJFOC-20150405619

PATIENT
  Age: 65 Year
  Sex: Male

DRUGS (2)
  1. XARELTO [Suspect]
     Active Substance: RIVAROXABAN
     Indication: CEREBROVASCULAR ACCIDENT PROPHYLAXIS
     Route: 048
     Dates: start: 20141008, end: 20150127
  2. XARELTO [Suspect]
     Active Substance: RIVAROXABAN
     Indication: ATRIAL FIBRILLATION
     Route: 048
     Dates: start: 20141008, end: 20150127

REACTIONS (5)
  - Pulmonary vein occlusion [Unknown]
  - White blood cell count decreased [Unknown]
  - Myocardial rupture [Unknown]
  - Cardiac tamponade [Recovered/Resolved]
  - Myocardial haemorrhage [Unknown]

NARRATIVE: CASE EVENT DATE: 20150127
